FAERS Safety Report 10048858 (Version 1)
Quarter: 2014Q1

REPORT INFORMATION
  Report Type: Spontaneous
  Country: US (occurrence: None)
  Receive Date: 20140327
  Receipt Date: 20140327
  Transmission Date: 20141002
  Serious: Yes (Hospitalization)
  Sender: FDA-Public Use
  Company Number: UTC-046152

PATIENT
  Sex: Male

DRUGS (2)
  1. REMODULIN [Suspect]
     Indication: COR PULMONALE CHRONIC
     Dosage: 172.8 UG/KG (0.12 UG/KG, 1 IN 1 MIN), INTRAVENOUS
     Dates: start: 20110923
  2. ADCIRCA (TADALAFIL) [Concomitant]

REACTIONS (1)
  - Catheterisation cardiac [None]
